FAERS Safety Report 6564962-9 (Version None)
Quarter: 2010Q1

REPORT INFORMATION
  Report Type: 
  Country: None (occurrence: None)
  Receive Date: 20100201
  Receipt Date: 20100122
  Transmission Date: 20100710
  Serious: No
  Sender: FDA-Public Use
  Company Number: US-B.I. PHARMACEUTICALS,INC./RIDGEFIELD-2010-BP-00933BP

PATIENT
  Sex: Female

DRUGS (3)
  1. ZANTAC 150 [Suspect]
     Indication: ABDOMINAL PAIN
     Dosage: 150 MG
     Route: 048
     Dates: start: 20100120
  2. PRILOSEC [Suspect]
     Indication: ABDOMINAL PAIN
     Dates: start: 20100121, end: 20100122
  3. SYNTHROID [Concomitant]
     Indication: HYPOTHYROIDISM

REACTIONS (1)
  - DIARRHOEA [None]
